FAERS Safety Report 6641830-5 (Version None)
Quarter: 2010Q1

REPORT INFORMATION
  Report Type: 
  Country: None (occurrence: None)
  Receive Date: 20100316
  Receipt Date: 20100305
  Transmission Date: 20100710
  Serious: Yes (Death, Hospitalization)
  Sender: FDA-Public Use
  Company Number: 2010AC000167

PATIENT
  Age: 76 Year
  Sex: Female
  Weight: 106.5953 kg

DRUGS (26)
  1. DIGOXIN [Suspect]
     Dosage: .125 MG; QOD; PO
     Route: 048
     Dates: start: 20080102, end: 20080329
  2. ALPHAGAN [Concomitant]
  3. COREG [Concomitant]
  4. TIAZAC [Concomitant]
  5. LASIX [Concomitant]
  6. NEURONTIN [Concomitant]
  7. INSULIN [Concomitant]
  8. LIPITOR [Concomitant]
  9. IRON [Concomitant]
  10. IMDUR [Concomitant]
  11. PREVACID [Concomitant]
  12. SYNTHROID [Concomitant]
  13. SINGULAIR [Concomitant]
  14. POTASSIUM [Concomitant]
  15. PULMICORT [Concomitant]
  16. XOPENEX [Concomitant]
  17. TEMAZEPAM [Concomitant]
  18. PRILOSEC [Concomitant]
  19. AVAPRO [Concomitant]
  20. TYLENOL-500 [Concomitant]
  21. DIOVAN [Concomitant]
  22. ROBITUSSIN [Concomitant]
  23. ATROVENT [Concomitant]
  24. FERROUS GLUCONATE [Concomitant]
  25. OXYGEN [Concomitant]
  26. CARDIZEM [Concomitant]

REACTIONS (19)
  - ACUTE RESPIRATORY FAILURE [None]
  - ALTERED STATE OF CONSCIOUSNESS [None]
  - ATRIAL FIBRILLATION [None]
  - BRADYCARDIA [None]
  - CARDIAC FAILURE CONGESTIVE [None]
  - CONGESTIVE CARDIOMYOPATHY [None]
  - DRUG TOXICITY [None]
  - ECONOMIC PROBLEM [None]
  - EMOTIONAL DISORDER [None]
  - HALLUCINATION [None]
  - HYPERKALAEMIA [None]
  - HYPOTENSION [None]
  - INJURY [None]
  - MENTAL STATUS CHANGES [None]
  - PAIN [None]
  - POLLAKIURIA [None]
  - RENAL FAILURE ACUTE [None]
  - SOCIAL PROBLEM [None]
  - URINARY INCONTINENCE [None]
